FAERS Safety Report 20756442 (Version 1)
Quarter: 2022Q2

REPORT INFORMATION
  Report Type: Spontaneous
  Country: RU (occurrence: RU)
  Receive Date: 20220427
  Receipt Date: 20220427
  Transmission Date: 20220720
  Serious: Yes (Hospitalization, Other)
  Sender: FDA-Public Use
  Company Number: RU-AMERICAN REGENT INC-2022001121

PATIENT
  Age: 30 Year
  Sex: Female
  Weight: 40 kg

DRUGS (5)
  1. FERINJECT [Suspect]
     Active Substance: FERRIC CARBOXYMALTOSE
     Indication: Iron deficiency anaemia
     Dosage: 100 MILLIGRAM THREE TIMES A WEEK (10 INJECTIONS)
     Dates: start: 201909
  2. ERYTHROPOIETIN [Suspect]
     Active Substance: ERYTHROPOIETIN
     Indication: Iron deficiency anaemia
     Dosage: 2000 INTERNATIONAL UNIT 3 TIMES A WEEK (10 INJECTIONS)
     Route: 058
     Dates: start: 201909
  3. DENOSUMAB [Concomitant]
     Active Substance: DENOSUMAB
     Indication: Hypercalcaemia
     Dosage: 60 MILLIGRAM
     Route: 058
     Dates: start: 201909
  4. CINACALCET [Concomitant]
     Active Substance: CINACALCET
     Indication: Hypercalcaemia
     Dosage: DOSE TITRATION UP TO 60 MG/DAY
     Route: 065
     Dates: start: 2019
  5. HUMAN RED BLOOD CELL [Concomitant]
     Active Substance: HUMAN RED BLOOD CELL
     Indication: Iron deficiency anaemia
     Dosage: TWO TRANSFUSIONS WITH TOTAL VOLUME OF 636 ML
     Route: 042

REACTIONS (1)
  - Hypocalcaemia [Recovering/Resolving]

NARRATIVE: CASE EVENT DATE: 20190901
